FAERS Safety Report 13358824 (Version 1)
Quarter: 2017Q1

REPORT INFORMATION
  Report Type: Spontaneous
  Country: IT (occurrence: IT)
  Receive Date: 20170322
  Receipt Date: 20170322
  Transmission Date: 20170429
  Serious: Yes (Other)
  Sender: FDA-Public Use
  Company Number: PHHY2017IT029381

PATIENT
  Age: 62 Year
  Sex: Male

DRUGS (1)
  1. AMOXICILLIN. [Suspect]
     Active Substance: AMOXICILLIN
     Indication: DENTAL CARE
     Dosage: 1 DF, ONCE/SINGLE
     Route: 048
     Dates: start: 20170220, end: 20170220

REACTIONS (3)
  - Hypersensitivity [Recovering/Resolving]
  - Erythema [Recovering/Resolving]
  - Respiration abnormal [Recovering/Resolving]

NARRATIVE: CASE EVENT DATE: 20170220
